FAERS Safety Report 23845854 (Version 1)
Quarter: 2024Q2

REPORT INFORMATION
  Report Type: Spontaneous
  Country: US (occurrence: US)
  Receive Date: 20240512
  Receipt Date: 20240512
  Transmission Date: 20240716
  Serious: No
  Sender: FDA-Public Use
  Company Number: US-CIPLA LTD.-2023US04920

PATIENT

DRUGS (1)
  1. ALBUTEROL [Suspect]
     Active Substance: ALBUTEROL
     Indication: Product used for unknown indication
     Dosage: 90 MCG (2 PUFFS EVERY 4 TO 6 (UNITS UNSPECIFIED))

REACTIONS (7)
  - Chest discomfort [Unknown]
  - Feeling abnormal [Unknown]
  - Discomfort [Unknown]
  - Dyspnoea [Unknown]
  - Product substitution issue [Unknown]
  - Drug ineffective [Unknown]
  - Product formulation issue [Unknown]

NARRATIVE: CASE EVENT DATE: 20230807
